FAERS Safety Report 5158731-4 (Version None)
Quarter: 2006Q4

REPORT INFORMATION
  Report Type: 
  Country: None (occurrence: None)
  Receive Date: 20061128
  Receipt Date: 20061122
  Transmission Date: 20070319
  Serious: Yes (Other)
  Sender: FDA-Public Use
  Company Number: JP-JPN-A200604812

PATIENT
  Age: 59 Year
  Sex: Male

DRUGS (11)
  1. VALTREX [Suspect]
     Indication: HERPES ZOSTER
     Dosage: 1000MG PER DAY
     Route: 048
     Dates: start: 20061101, end: 20061103
  2. ADONA (AC-17) [Concomitant]
     Route: 065
  3. CALTAN [Concomitant]
     Route: 048
  4. UNKNOWN NAME [Concomitant]
     Route: 048
  5. ELIETEN [Concomitant]
     Route: 065
  6. D-ALFA [Concomitant]
     Route: 048
  7. HALCION [Concomitant]
     Route: 048
  8. UNKNOWN NAME [Concomitant]
     Route: 048
  9. NORVASC [Concomitant]
     Route: 048
  10. NU-LOTAN [Concomitant]
     Route: 048
  11. UNKNOWN NAME [Concomitant]
     Route: 048

REACTIONS (2)
  - BLOOD PRESSURE INCREASED [None]
  - DEPRESSED LEVEL OF CONSCIOUSNESS [None]
